FAERS Safety Report 14565101 (Version 1)
Quarter: 2018Q1

REPORT INFORMATION
  Report Type: Spontaneous
  Country: FR (occurrence: FR)
  Receive Date: 20180223
  Receipt Date: 20180223
  Transmission Date: 20180509
  Serious: Yes (Hospitalization)
  Sender: FDA-Public Use
  Company Number: FR-AUROBINDO-AUR-APL-2018-008808

PATIENT
  Age: 74 Year
  Sex: Female

DRUGS (6)
  1. RANITIDINE. [Concomitant]
     Active Substance: RANITIDINE
     Indication: PROPHYLAXIS AGAINST GASTROINTESTINAL ULCER
     Dosage: 150 MG, QD
     Route: 048
  2. DISCOTRINE [Concomitant]
     Active Substance: NITROGLYCERIN
     Indication: PROPHYLAXIS
     Dosage: 10 MG, QD
     Route: 050
  3. BISOCE [Concomitant]
     Active Substance: BISOPROLOL
     Indication: PROPHYLAXIS
     Dosage: 5 MG, QD
     Route: 048
  4. ATORVASTATIN [Suspect]
     Active Substance: ATORVASTATIN
     Indication: HYPERCHOLESTEROLAEMIA
     Dosage: 40 MG, QD
     Route: 048
  5. PERINDOPRIL TABLET [Suspect]
     Active Substance: PERINDOPRIL
     Indication: PROPHYLAXIS
     Dosage: 4 MG, QD
     Route: 048
  6. APIXABAN [Suspect]
     Active Substance: APIXABAN
     Indication: PRODUCT USED FOR UNKNOWN INDICATION
     Dosage: 10 MG, QD
     Route: 048
     Dates: start: 20170316

REACTIONS (2)
  - Infective spondylitis [Recovered/Resolved]
  - Streptococcal infection [Recovered/Resolved]

NARRATIVE: CASE EVENT DATE: 20170702
